FAERS Safety Report 9763928 (Version 1)
Quarter: 2013Q4

REPORT INFORMATION
  Report Type: Spontaneous
  Country: US (occurrence: US)
  Receive Date: 20131216
  Receipt Date: 20131216
  Transmission Date: 20140711
  Serious: No
  Sender: FDA-Public Use
  Company Number: US-BIOGENIDEC-2013BI110822

PATIENT
  Age: 59 Year
  Sex: Female

DRUGS (1)
  1. TECFIDERA [Suspect]
     Indication: MULTIPLE SCLEROSIS
     Route: 048
     Dates: start: 201306, end: 201310

REACTIONS (6)
  - Headache [Unknown]
  - Acne pustular [Unknown]
  - Balance disorder [Unknown]
  - Asthenia [Unknown]
  - Somnolence [Unknown]
  - Muscle spasms [Unknown]
